FAERS Safety Report 6956563-5 (Version None)
Quarter: 2010Q3

REPORT INFORMATION
  Report Type: 
  Country: None (occurrence: None)
  Receive Date: 20100830
  Receipt Date: 20100818
  Transmission Date: 20110219
  Serious: Yes (Other)
  Sender: FDA-Public Use
  Company Number: JP-PFIZER INC-2010104526

PATIENT
  Sex: Male

DRUGS (4)
  1. LYRICA [Suspect]
     Indication: POST HERPETIC NEURALGIA
     Dosage: 25 MG, 1X/DAY
     Route: 048
     Dates: start: 20100707, end: 20100809
  2. LYRICA [Suspect]
     Dosage: 75 MG, 1X/DAY
     Route: 048
     Dates: start: 20100810, end: 20100801
  3. CADUET [Concomitant]
     Indication: HYPERTENSION
     Dosage: UNK DF, UNK
     Route: 048
  4. GASMOTIN [Concomitant]
     Indication: GASTRITIS
     Dosage: UNK
     Route: 048

REACTIONS (3)
  - DRUG ERUPTION [None]
  - ERYTHEMA [None]
  - OEDEMA MOUTH [None]
